FAERS Safety Report 21229427 (Version 1)
Quarter: 2022Q3

REPORT INFORMATION
  Report Type: Spontaneous
  Country: DE (occurrence: DE)
  Receive Date: 20220818
  Receipt Date: 20220818
  Transmission Date: 20221027
  Serious: Yes (Life-Threatening)
  Sender: FDA-Public Use
  Company Number: None

PATIENT
  Age: 77 Year
  Sex: Male
  Weight: 95 kg

DRUGS (4)
  1. MEROPENEM [Suspect]
     Active Substance: MEROPENEM
     Indication: Urosepsis
     Dosage: 4 G, 1X/DAY
     Route: 042
     Dates: start: 20220730, end: 20220803
  2. CIPROFLOXACIN [Concomitant]
     Active Substance: CIPROFLOXACIN
     Dosage: 400 MG, 3X/DAY
     Route: 042
     Dates: start: 20220730, end: 20220801
  3. METAMIZOLE [Concomitant]
     Active Substance: METAMIZOLE
     Dosage: UNK
     Dates: start: 20220730, end: 20220802
  4. VANCOMYCIN [Concomitant]
     Active Substance: VANCOMYCIN
     Indication: Urosepsis
     Dosage: UNK
     Route: 042
     Dates: start: 20220730, end: 20220802

REACTIONS (5)
  - Leukocytosis [Not Recovered/Not Resolved]
  - Toxic epidermal necrolysis [Not Recovered/Not Resolved]
  - Rash pustular [Not Recovered/Not Resolved]
  - Blood lactic acid increased [Unknown]
  - Off label use [Unknown]

NARRATIVE: CASE EVENT DATE: 20220730
